FAERS Safety Report 6013790-1 (Version None)
Quarter: 2008Q4

REPORT INFORMATION
  Report Type: 
  Country: None (occurrence: None)
  Receive Date: 20081219
  Receipt Date: 20081208
  Transmission Date: 20090506
  Serious: Yes (Hospitalization)
  Sender: FDA-Public Use
  Company Number: GB-PFIZER INC-2008152365

PATIENT

DRUGS (10)
  1. SUNITINIB MALATE [Suspect]
     Indication: RENAL CELL CARCINOMA
     Dosage: 37.5 MG, 1X/DAY, CYCLIC
     Route: 048
     Dates: start: 20080404
  2. IBUPROFEN [Concomitant]
     Dosage: UNK
     Route: 048
     Dates: start: 20060108
  3. OMEPRAZOLE [Concomitant]
     Dosage: UNK
     Route: 048
  4. ACETAMINOPHEN W/ CODEINE [Concomitant]
     Dosage: UNK
     Route: 048
     Dates: start: 20070319
  5. METOCLOPRAMIDE [Concomitant]
     Dosage: UNK
     Route: 048
     Dates: start: 20071203
  6. DEXAMETHASONE [Concomitant]
     Dosage: UNK
     Route: 048
     Dates: start: 20080121
  7. TEMAZEPAM [Concomitant]
     Dosage: UNK
     Route: 048
     Dates: start: 20080212
  8. RANITIDINE [Concomitant]
     Dosage: UNK
     Route: 048
     Dates: start: 20080401
  9. ORAMORPH SR [Concomitant]
     Dosage: UNK
     Route: 048
     Dates: start: 20070101
  10. HYDROCORTISONE [Concomitant]
     Dosage: UNK
     Route: 048
     Dates: start: 20080501

REACTIONS (2)
  - CHEST PAIN [None]
  - VOMITING [None]
